FAERS Safety Report 5087797-5 (Version None)
Quarter: 2006Q3

REPORT INFORMATION
  Report Type: 
  Country: None (occurrence: None)
  Receive Date: 20060821
  Receipt Date: 20060821
  Transmission Date: 20061208
  Serious: Yes (Hospitalization)
  Sender: FDA-Public Use
  Company Number: None

PATIENT
  Age: 26 Year
  Sex: Female

DRUGS (1)
  1. TOPAMAX [Suspect]
     Indication: MASS
     Dosage: 25 MG   PO
     Route: 048
     Dates: start: 20060817, end: 20060817

REACTIONS (3)
  - DYSKINESIA [None]
  - HYPOAESTHESIA ORAL [None]
  - MUSCLE TWITCHING [None]
